FAERS Safety Report 13299708 (Version 5)
Quarter: 2017Q4

REPORT INFORMATION
  Report Type: Report from Study
  Country: FR (occurrence: FR)
  Receive Date: 20170306
  Receipt Date: 20171211
  Transmission Date: 20180320
  Serious: Yes (Hospitalization)
  Sender: FDA-Public Use
  Company Number: FR-EISAI MEDICAL RESEARCH-EC-2017-025598

PATIENT
  Age: 31 Year
  Sex: Male
  Weight: 82 kg

DRUGS (6)
  1. PREGABALINE [Concomitant]
     Active Substance: PREGABALIN
  2. FYCOMPA [Suspect]
     Active Substance: PERAMPANEL
     Route: 048
     Dates: start: 20160918, end: 20170824
  3. FYCOMPA [Suspect]
     Active Substance: PERAMPANEL
     Route: 048
     Dates: start: 20160903, end: 20160917
  4. LAMICTAL [Suspect]
     Active Substance: LAMOTRIGINE
     Indication: EPILEPSY
     Route: 048
     Dates: start: 2006, end: 2016
  5. FYCOMPA [Suspect]
     Active Substance: PERAMPANEL
     Indication: PARTIAL SEIZURES
     Route: 048
     Dates: start: 20160819, end: 20160902
  6. LAMICTAL [Suspect]
     Active Substance: LAMOTRIGINE
     Dosage: DOSE DECREASED (DOSE UNKNOWN)
     Route: 048
     Dates: start: 2016

REACTIONS (3)
  - Jaw fracture [Recovered/Resolved]
  - Fall [Recovered/Resolved]
  - Weight increased [Not Recovered/Not Resolved]

NARRATIVE: CASE EVENT DATE: 20160822
